FAERS Safety Report 19167302 (Version 1)
Quarter: 2021Q2

REPORT INFORMATION
  Report Type: Spontaneous
  Country: US (occurrence: US)
  Receive Date: 20210422
  Receipt Date: 20210422
  Transmission Date: 20210717
  Serious: Yes (Hospitalization, Other)
  Sender: FDA-Public Use
  Company Number: US-ASTRAZENECA-2021A324646

PATIENT
  Age: 23882 Day
  Sex: Male
  Weight: 76.7 kg

DRUGS (3)
  1. BYDUREON [Suspect]
     Active Substance: EXENATIDE
     Indication: TYPE 2 DIABETES MELLITUS
     Dosage: ONCE A WEEK
     Route: 065
  2. METFOMRIN [Concomitant]
     Indication: DIABETES MELLITUS
  3. LANTUS [Concomitant]
     Active Substance: INSULIN GLARGINE
     Indication: DIABETES MELLITUS

REACTIONS (5)
  - Lung neoplasm malignant [Unknown]
  - Headache [Unknown]
  - Fall [Unknown]
  - Concussion [Unknown]
  - Dizziness [Unknown]

NARRATIVE: CASE EVENT DATE: 20210129
